FAERS Safety Report 6183517-1 (Version None)
Quarter: 2009Q2

REPORT INFORMATION
  Report Type: 
  Country: None (occurrence: None)
  Receive Date: 20090506
  Receipt Date: 20090427
  Transmission Date: 20091009
  Serious: Yes (Hospitalization, Other)
  Sender: FDA-Public Use
  Company Number: 2008-04162

PATIENT
  Age: 66 Year
  Sex: Female
  Weight: 68.3 kg

DRUGS (14)
  1. VELCADE [Suspect]
     Indication: NON-HODGKIN'S LYMPHOMA
     Dosage: 1.3 MG/M2, INTRAVENOUS
     Route: 042
     Dates: start: 20080623, end: 20080926
  2. BENDAMUSTINE(BENDAMUSTINE HYDROCHLORIDE) SOLUTION (EXCEPT SYRUP), 25 T [Suspect]
     Indication: NON-HODGKIN'S LYMPHOMA
     Dosage: 90 MG/M2, INTRAVENOUS
     Route: 042
     Dates: start: 20080623, end: 20080919
  3. RITUXIMAB(RITUXIMAB) INJECTION, 375MG/M2 [Suspect]
     Indication: NON-HODGKIN'S LYMPHOMA
     Dosage: 375 MG/M2, INTRAVENOUS
     Route: 042
     Dates: start: 20080623, end: 20080916
  4. RITUXIMAB(RITUXIMAB) INJECTION, 375MG/M2 [Suspect]
  5. RITUXIMAB(RITUXIMAB) INJECTION, 375MG/M2 [Suspect]
  6. RITUXIMAB(RITUXIMAB) INJECTION, 375MG/M2 [Suspect]
  7. OS-CAL + D ^MARION^ (COLECALCIFEROL, CALCIUM CARBONATE) [Concomitant]
  8. GLUCOSAMINE (GLUCOSAMINE) [Concomitant]
  9. CENTRUM SILVER (TOCOPHERYL ACETATE, CALCIUM, ZINC, MINERALS NOS, VITAM [Concomitant]
  10. VITAMIN B12 [Concomitant]
  11. COUMADIN [Concomitant]
  12. CELEBREX [Concomitant]
  13. ZYRTEC [Concomitant]
  14. BENADRYL (SODIUM CITRATE, AMMONIUM CHLORIDE, MENTHOL, DIPHENHYDRAMINE [Concomitant]

REACTIONS (18)
  - BAND NEUTROPHIL PERCENTAGE INCREASED [None]
  - BLOOD LACTATE DEHYDROGENASE INCREASED [None]
  - BLOOD PRESSURE SYSTOLIC INCREASED [None]
  - BODY TEMPERATURE INCREASED [None]
  - COAGULOPATHY [None]
  - DISEASE RECURRENCE [None]
  - HEART RATE INCREASED [None]
  - INTERVERTEBRAL DISC DEGENERATION [None]
  - INTERVERTEBRAL DISC SPACE NARROWING [None]
  - INTERVERTEBRAL DISCITIS [None]
  - LYMPHOMA [None]
  - OSTEOMYELITIS [None]
  - PAIN IN EXTREMITY [None]
  - PSOAS ABSCESS [None]
  - RESPIRATORY RATE INCREASED [None]
  - STAPHYLOCOCCAL ABSCESS [None]
  - STAPHYLOCOCCAL BACTERAEMIA [None]
  - WALKING AID USER [None]
